FAERS Safety Report 18121952 (Version 4)
Quarter: 2025Q3

REPORT INFORMATION
  Report Type: Spontaneous
  Country: EU (occurrence: EU)
  Receive Date: 20200806
  Receipt Date: 20250702
  Transmission Date: 20251021
  Serious: Yes (Death, Other)
  Sender: AUROBINDO
  Company Number: EU-LSSRM-2020-IT-1805886

PATIENT
  Age: 64 Year
  Sex: Female

DRUGS (17)
  1. FLUDARABINE [Suspect]
     Active Substance: FLUDARABINE PHOSPHATE
     Indication: Chronic lymphocytic leukaemia
     Route: 065
  2. MELPHALAN [Suspect]
     Active Substance: MELPHALAN
     Indication: Immunosuppressant drug therapy
     Route: 065
  3. BENDAMUSTINE [Suspect]
     Active Substance: BENDAMUSTINE
     Indication: Chronic lymphocytic leukaemia
     Route: 065
  4. CARMUSTINE [Suspect]
     Active Substance: CARMUSTINE
     Indication: Immunosuppressant drug therapy
     Route: 065
  5. CYCLOPHOSPHAMIDE [Suspect]
     Active Substance: CYCLOPHOSPHAMIDE
     Indication: Chronic lymphocytic leukaemia
     Route: 065
  6. CYTARABINE [Suspect]
     Active Substance: CYTARABINE
     Indication: Immunosuppressant drug therapy
     Route: 065
  7. ETOPOSIDE [Suspect]
     Active Substance: ETOPOSIDE
     Indication: Immunosuppressant drug therapy
     Route: 065
  8. IDELALISIB [Suspect]
     Active Substance: IDELALISIB
     Indication: Chronic lymphocytic leukaemia
     Dosage: 150 MILLIGRAM, TWO TIMES A DAY (300 MILLIGRAM, ONCE A DAY)
     Route: 048
     Dates: end: 201609
  9. IDELALISIB [Suspect]
     Active Substance: IDELALISIB
     Route: 048
  10. IDELALISIB [Suspect]
     Active Substance: IDELALISIB
     Route: 048
     Dates: start: 201512
  11. IDELALISIB [Suspect]
     Active Substance: IDELALISIB
     Route: 048
  12. IDELALISIB [Suspect]
     Active Substance: IDELALISIB
     Route: 048
     Dates: start: 201609
  13. OFATUMUMAB [Suspect]
     Active Substance: OFATUMUMAB
     Indication: Chronic lymphocytic leukaemia
     Route: 065
  14. OFATUMUMAB [Suspect]
     Active Substance: OFATUMUMAB
     Route: 065
  15. RITUXIMAB [Suspect]
     Active Substance: RITUXIMAB
     Indication: Chronic lymphocytic leukaemia
     Route: 065
     Dates: start: 201510, end: 201512
  16. MEFLOQUINE HYDROCHLORIDE [Suspect]
     Active Substance: MEFLOQUINE HYDROCHLORIDE
     Indication: Product used for unknown indication
     Route: 065
  17. MIRTAZAPINE [Concomitant]
     Active Substance: MIRTAZAPINE
     Indication: Product used for unknown indication
     Route: 065

REACTIONS (13)
  - Status epilepticus [Fatal]
  - Progressive multifocal leukoencephalopathy [Fatal]
  - Muscular weakness [Fatal]
  - Immune reconstitution inflammatory syndrome [Fatal]
  - Epilepsia partialis continua [Fatal]
  - Hemianopia [Fatal]
  - Colitis [Fatal]
  - Ataxia [Fatal]
  - Anosognosia [Fatal]
  - Rash [Fatal]
  - Toxicity to various agents [Unknown]
  - Disease progression [Unknown]
  - JC virus infection [Unknown]

NARRATIVE: CASE EVENT DATE: 20160901
